FAERS Safety Report 25147058 (Version 1)
Quarter: 2025Q2

REPORT INFORMATION
  Report Type: Spontaneous
  Country: TH (occurrence: TH)
  Receive Date: 20250401
  Receipt Date: 20250401
  Transmission Date: 20250716
  Serious: Yes (Other)
  Sender: MYLAN
  Company Number: TH-MYLANLABS-2025M1027315

PATIENT
  Age: 31 Year
  Sex: Female

DRUGS (4)
  1. DILANTIN [Suspect]
     Active Substance: PHENYTOIN
     Indication: Product used for unknown indication
     Dates: start: 20240515, end: 20240515
  2. DILANTIN [Suspect]
     Active Substance: PHENYTOIN
     Route: 042
     Dates: start: 20240515, end: 20240515
  3. DILANTIN [Suspect]
     Active Substance: PHENYTOIN
     Route: 042
     Dates: start: 20240515, end: 20240515
  4. DILANTIN [Suspect]
     Active Substance: PHENYTOIN
     Dates: start: 20240515, end: 20240515

REACTIONS (1)
  - Hypoaesthesia [Recovering/Resolving]

NARRATIVE: CASE EVENT DATE: 20240515
